FAERS Safety Report 8008257-5 (Version None)
Quarter: 2011Q4

REPORT INFORMATION
  Report Type: 
  Country: None (occurrence: None)
  Receive Date: 20111227
  Receipt Date: 20111223
  Transmission Date: 20120403
  Serious: Yes (Life-Threatening, Hospitalization)
  Sender: FDA-Public Use
  Company Number: US-ROCHE-1008837

PATIENT
  Sex: Male

DRUGS (12)
  1. COPEGUS [Suspect]
     Indication: HEPATITIS C
  2. DOXEPIN HCL [Concomitant]
  3. PEGASYS [Suspect]
     Indication: HEPATITIS C
  4. CYMBALTA [Concomitant]
     Indication: DEPRESSION
     Route: 048
  5. DILAUDID [Concomitant]
     Indication: PAIN
     Route: 048
  6. PROTONIX [Concomitant]
  7. TELAPREVIR [Suspect]
     Indication: HEPATITIS C
     Route: 048
     Dates: start: 20111020, end: 20111103
  8. SOMA [Concomitant]
  9. ZOFRAN [Concomitant]
  10. FENTANYL-100 [Concomitant]
     Dosage: Q72.
  11. NEURONTIN [Concomitant]
  12. XANAX [Concomitant]

REACTIONS (4)
  - ACUTE RESPIRATORY FAILURE [None]
  - MULTIPLE DRUG OVERDOSE [None]
  - DRUG INEFFECTIVE [None]
  - UNEVALUABLE EVENT [None]
